FAERS Safety Report 17257615 (Version 1)
Quarter: 2020Q1

REPORT INFORMATION
  Report Type: Spontaneous
  Country: SE (occurrence: SE)
  Receive Date: 20200110
  Receipt Date: 20200110
  Transmission Date: 20200409
  Serious: Yes (Other)
  Sender: FDA-Public Use
  Company Number: SE-MYLANLABS-2020M1002819

PATIENT
  Age: 42 Year
  Sex: Male

DRUGS (2)
  1. RELIFEX 500 MG FILMDRAGERADE TABLETTER [Suspect]
     Active Substance: NABUMETONE
     Indication: INFLAMMATION
     Dosage: UNK
  2. RELIFEX 500 MG FILMDRAGERADE TABLETTER [Suspect]
     Active Substance: NABUMETONE
     Indication: PAIN
     Dosage: 500 MILLIGRAM, QD, 500MG EN TABLETT DAGLIGEN
     Route: 048
     Dates: start: 20190930, end: 20191001

REACTIONS (2)
  - Heart rate increased [Recovered/Resolved]
  - Dyspnoea [Recovered/Resolved]

NARRATIVE: CASE EVENT DATE: 20191001
